FAERS Safety Report 6336351-3 (Version None)
Quarter: 2009Q3

REPORT INFORMATION
  Report Type: 
  Country: None (occurrence: None)
  Receive Date: 20090901
  Receipt Date: 20090820
  Transmission Date: 20100115
  Serious: Yes (Other)
  Sender: FDA-Public Use
  Company Number: US-ELI_LILLY_AND_COMPANY-US200908004452

PATIENT

DRUGS (1)
  1. PROZAC [Suspect]
     Dosage: UNK, UNKNOWN
     Route: 065
     Dates: start: 20050101

REACTIONS (3)
  - HALLUCINATION [None]
  - INSOMNIA [None]
  - NIGHTMARE [None]
